FAERS Safety Report 15694749 (Version 1)
Quarter: 2018Q4

REPORT INFORMATION
  Report Type: Spontaneous
  Country: NL (occurrence: NL)
  Receive Date: 20181206
  Receipt Date: 20181206
  Transmission Date: 20190205
  Serious: Yes (Hospitalization)
  Sender: FDA-Public Use
  Company Number: NL-009507513-1812NLD002120

PATIENT
  Age: 41 Year
  Sex: Male
  Weight: 77 kg

DRUGS (5)
  1. OXYNORM [Concomitant]
     Active Substance: OXYCODONE HYDROCHLORIDE
     Dosage: 1 DOSAGE FORM; AS NECESSARY 10 MG OF 6DD1
  2. LOPERAMIDE [Concomitant]
     Active Substance: LOPERAMIDE
     Dosage: 1 DOSAGE FORM; AS NECESSARY 2 MG
  3. OXYCONTIN [Concomitant]
     Active Substance: OXYCODONE HYDROCHLORIDE
     Dosage: 40 MILLIGRAM, QD; TABLET PROLONGED RELEASE; 1 TIME A DAY 1 DOSE
  4. MK-3475 [Suspect]
     Active Substance: PEMBROLIZUMAB
     Indication: COLON CANCER METASTATIC
     Dosage: 1 DOSAGE FORM; 250 MILLIGRAM/SQ. METER; STRENGTH: 1 MG/MG
     Route: 042
     Dates: start: 20161027
  5. ACETAMINOPHEN. [Concomitant]
     Active Substance: ACETAMINOPHEN
     Dosage: 1 DOSAGE FORM; AS NECESSARY 500 MG OF 4 TIMES A DAY 2 DOSES

REACTIONS (1)
  - Vision blurred [Recovering/Resolving]

NARRATIVE: CASE EVENT DATE: 20181114
